FAERS Safety Report 19045873 (Version 1)
Quarter: 2021Q1

REPORT INFORMATION
  Report Type: Spontaneous
  Country: US (occurrence: US)
  Receive Date: 20210322
  Receipt Date: 20210322
  Transmission Date: 20210420
  Serious: No
  Sender: FDA-Public Use
  Company Number: US-INCYTE CORPORATION-2021IN001360

PATIENT

DRUGS (2)
  1. JAKAFI [Suspect]
     Active Substance: RUXOLITINIB
     Indication: SPINAL PAIN
  2. JAKAFI [Suspect]
     Active Substance: RUXOLITINIB
     Indication: LEUKAEMOID REACTION
     Dosage: 15 MILLIGRAM, BID
     Route: 048
     Dates: start: 20201201

REACTIONS (2)
  - Drug intolerance [Unknown]
  - Off label use [Unknown]

NARRATIVE: CASE EVENT DATE: 20201201
